FAERS Safety Report 5341555-2 (Version None)
Quarter: 2007Q2

REPORT INFORMATION
  Report Type: 
  Country: None (occurrence: None)
  Receive Date: 20070529
  Receipt Date: 20070529
  Transmission Date: 20071010
  Serious: No
  Sender: FDA-Public Use
  Company Number: None

PATIENT
  Sex: Male

DRUGS (2)
  1. LOPID [Suspect]
     Indication: HYPERTRIGLYCERIDAEMIA
     Dosage: 1 BID
  2. TRICOR [Concomitant]

REACTIONS (3)
  - DIARRHOEA [None]
  - HYPERHIDROSIS [None]
  - PALPITATIONS [None]
